FAERS Safety Report 10172788 (Version 1)
Quarter: 2014Q2

REPORT INFORMATION
  Report Type: Spontaneous
  Country: JP (occurrence: None)
  Receive Date: 20140513
  Receipt Date: 20140513
  Transmission Date: 20141212
  Serious: Yes (Other)
  Sender: FDA-Public Use
  Company Number: FK201401710

PATIENT
  Age: 61 Year
  Sex: Female

DRUGS (6)
  1. FLUOROURACIL (MANUFACTURER UNKNOWN) (FLUOROURACIL) (FLUOROURACIL) [Suspect]
     Indication: APPENDIX CANCER
     Dosage: 11 CYCLES, RELATIVE DOSE STRENGTH OF 64%?
  2. FLUOROURACIL (MANUFACTURER UNKNOWN) (FLUOROURACIL) (FLUOROURACIL) [Suspect]
     Indication: METASTATIC NEOPLASM
     Dosage: 11 CYCLES, RELATIVE DOSE STRENGTH OF 64%?
  3. LEUCOVORIN CALCIUM (MANUFACTURER UNKNOWN) (LEUCOVORIN CALCIUM) (LEUCOVORIN CALCIUM) [Suspect]
     Indication: APPENDIX CANCER
     Dosage: 11 CYCLES, RELATIVE DOSE STRENTTH OF 64%
  4. LEUCOVORIN CALCIUM (MANUFACTURER UNKNOWN) (LEUCOVORIN CALCIUM) (LEUCOVORIN CALCIUM) [Suspect]
     Indication: METASTATIC NEOPLASM
     Dosage: 11 CYCLES, RELATIVE DOSE STRENTTH OF 64%
  5. OXALIPLATIN (MANUFACTURER UNKNOWN) (OXALIPLATIN) (OXALIPLATIN) [Suspect]
     Indication: APPENDIX CANCER
     Dosage: 11 CYCLES, RELATIVE DOSE STRENGTH OF 64%?
  6. OXALIPLATIN (MANUFACTURER UNKNOWN) (OXALIPLATIN) (OXALIPLATIN) [Suspect]
     Indication: METASTATIC NEOPLASM
     Dosage: 11 CYCLES, RELATIVE DOSE STRENGTH OF 64%?

REACTIONS (4)
  - Biliary tract infection [None]
  - Hepatic function abnormal [None]
  - Neutropenia [None]
  - Leukopenia [None]
